FAERS Safety Report 9312048 (Version 1)
Quarter: 2013Q2

REPORT INFORMATION
  Report Type: Spontaneous
  Country: US (occurrence: US)
  Receive Date: 20130528
  Receipt Date: 20130528
  Transmission Date: 20140414
  Serious: No
  Sender: FDA-Public Use
  Company Number: US-009507513-1305USA010042

PATIENT
  Age: 71 Year
  Sex: Female
  Weight: 76.19 kg

DRUGS (10)
  1. CLARITIN LIQUIGELS [Suspect]
     Indication: PRODUCT USED FOR UNKNOWN INDICATION
     Dosage: UNK, ONCE
     Route: 048
     Dates: start: 20130426, end: 20130501
  2. CLARITIN LIQUIGELS [Suspect]
     Indication: MEDICAL OBSERVATION
  3. CLARITIN LIQUIGELS [Suspect]
     Indication: RHINORRHOEA
  4. CLARITIN LIQUIGELS [Suspect]
     Indication: SNEEZING
  5. NEXIUM [Concomitant]
     Dosage: UNK, UNKNOWN
     Route: 048
  6. CELEBREX [Concomitant]
     Dosage: UNK, UNKNOWN
  7. CHOLECALCIFEROL [Concomitant]
     Dosage: UNK, UNKNOWN
  8. CAL-CITRATE [Concomitant]
     Dosage: UNK, UNKNOWN
  9. VITAMINS (UNSPECIFIED) [Concomitant]
     Dosage: UNK, UNKNOWN
  10. ATORVASTATIN [Concomitant]
     Dosage: UNK, UNKNOWN

REACTIONS (2)
  - Drug ineffective [Unknown]
  - Lethargy [Recovering/Resolving]
